FAERS Safety Report 6585106-3 (Version None)
Quarter: 2010Q1

REPORT INFORMATION
  Report Type: 
  Country: None (occurrence: None)
  Receive Date: 20100217
  Receipt Date: 20100205
  Transmission Date: 20100710
  Serious: Yes (Death, Hospitalization)
  Sender: FDA-Public Use
  Company Number: US-PFIZER INC-2010005070

PATIENT
  Sex: Female
  Weight: 58.957 kg

DRUGS (13)
  1. SUTENT [Suspect]
     Indication: METASTATIC RENAL CELL CARCINOMA
     Dosage: 50 MG, UNK
  2. SUTENT [Suspect]
     Indication: LUNG NEOPLASM MALIGNANT
  3. TOPROL-XL [Concomitant]
     Dosage: UNK
  4. ZOCOR [Concomitant]
     Dosage: UNK
  5. PAXIL [Concomitant]
     Dosage: UNK
  6. PRILOSEC [Concomitant]
     Dosage: UNK
  7. LISINOPRIL [Concomitant]
     Dosage: UNK
  8. LEVOXYL [Concomitant]
     Dosage: UNK
  9. KEPPRA [Concomitant]
     Dosage: UNK
  10. FERROUS SULFATE [Concomitant]
     Dosage: UNK
  11. LANTUS [Concomitant]
     Dosage: UNK
  12. REGULAR INSULIN [Concomitant]
     Dosage: UNK
  13. DECADRON [Concomitant]
     Dosage: UNK

REACTIONS (7)
  - ASTHENIA [None]
  - DECREASED APPETITE [None]
  - DISEASE PROGRESSION [None]
  - INTESTINAL PERFORATION [None]
  - MENTAL STATUS CHANGES [None]
  - METASTATIC RENAL CELL CARCINOMA [None]
  - URINARY TRACT INFECTION [None]
